FAERS Safety Report 8905288 (Version 2)
Quarter: 2012Q4

REPORT INFORMATION
  Report Type: 
  Country: CL (occurrence: CL)
  Receive Date: 20121109
  Receipt Date: 20121123
  Transmission Date: 20130627
  Serious: Yes (Hospitalization, Other)
  Sender: FDA-Public Use
  Company Number: PHHY2012CL102967

PATIENT
  Age: 2 Month
  Sex: Male

DRUGS (1)
  1. PROPRANOLOL [Suspect]
     Indication: HAEMANGIOMA
     Dosage: 20 mg/kg, UNK
     Route: 048

REACTIONS (5)
  - Restlessness [Unknown]
  - Euphoric mood [Unknown]
  - Insomnia [Unknown]
  - Overdose [Unknown]
  - Therapy responder [Unknown]
